FAERS Safety Report 13831061 (Version 4)
Quarter: 2018Q2

REPORT INFORMATION
  Report Type: Spontaneous
  Country: FR (occurrence: FR)
  Receive Date: 20170803
  Receipt Date: 20180406
  Transmission Date: 20180711
  Serious: Yes (Hospitalization)
  Sender: FDA-Public Use
  Company Number: FR-009507513-1708FRA000168

PATIENT
  Age: 33 Year
  Sex: Male
  Weight: 59.3 kg

DRUGS (19)
  1. ZERBAXA [Suspect]
     Active Substance: CEFTOLOZANE SULFATE\TAZOBACTAM SODIUM
     Dosage: 6 G, UNK (2 G, 1 IN 8 HOUR)
     Route: 041
     Dates: start: 20170709, end: 20170711
  2. FOSFOCINE [Concomitant]
     Active Substance: FOSFOMYCIN
     Indication: PNEUMONIA STAPHYLOCOCCAL
     Dosage: UNK
     Route: 041
     Dates: start: 20170602, end: 20170617
  3. COLIMYCINE (COLISTIN SULFATE) [Suspect]
     Active Substance: COLISTIN SULFATE
     Indication: PNEUMONIA STREPTOCOCCAL
     Dosage: 2 DF, Q6H
     Route: 055
     Dates: start: 20170626, end: 20170703
  4. METHADONE HYDROCHLORIDE. [Suspect]
     Active Substance: METHADONE HYDROCHLORIDE
     Indication: DRUG DEPENDENCE
     Dosage: 30 MG, QD
     Route: 048
     Dates: start: 20170602
  5. FOSFOCINE [Concomitant]
     Active Substance: FOSFOMYCIN
     Dosage: UNK
     Route: 041
     Dates: start: 20170622, end: 20170623
  6. NEBCINE [Suspect]
     Active Substance: TOBRAMYCIN
     Indication: PNEUMONIA STREPTOCOCCAL
     Dosage: 400 MG, QD
     Route: 041
     Dates: start: 20170629, end: 20170701
  7. NEBCINE [Suspect]
     Active Substance: TOBRAMYCIN
     Dosage: 400 MG, QD
     Route: 041
     Dates: start: 20170710, end: 20170711
  8. ARGANOVA [Suspect]
     Active Substance: ARGATROBAN
     Indication: THROMBOPHLEBITIS SEPTIC
  9. COLIMYCINE (COLISTIN SULFATE) [Suspect]
     Active Substance: COLISTIN SULFATE
     Dosage: 2 DF, Q6H
     Route: 055
     Dates: start: 20170617, end: 20170623
  10. COLIMYCINE (COLISTIN SULFATE) [Suspect]
     Active Substance: COLISTIN SULFATE
     Dosage: 2 DF, Q6H
     Route: 055
     Dates: start: 20170710, end: 20170711
  11. MYCAMINE [Concomitant]
     Active Substance: MICAFUNGIN SODIUM
     Dosage: 100 MG, UNK
     Route: 041
     Dates: start: 20170617, end: 20170617
  12. MYCAMINE [Concomitant]
     Active Substance: MICAFUNGIN SODIUM
     Dosage: UNK
     Route: 041
     Dates: start: 20170601
  13. ZERBAXA [Suspect]
     Active Substance: CEFTOLOZANE SULFATE\TAZOBACTAM SODIUM
     Indication: SEPTIC SHOCK
     Dosage: 6 G, UNK (2 G, 1 IN 8 HOUR)
     Route: 041
     Dates: start: 20170624, end: 20170629
  14. NEBCINE [Suspect]
     Active Substance: TOBRAMYCIN
     Indication: PNEUMONIA
     Dosage: 400 MG, QD
     Route: 041
     Dates: start: 20170612, end: 20170612
  15. COLIMYCINE (COLISTIN SULFATE) [Suspect]
     Active Substance: COLISTIN SULFATE
     Indication: PNEUMONIA
     Dosage: 2 DF, Q6H (1 MUI)
     Route: 055
     Dates: start: 20170602, end: 20170614
  16. ARGANOVA [Suspect]
     Active Substance: ARGATROBAN
     Indication: EMBOLISM
     Dosage: UNK
     Route: 041
     Dates: start: 20170511, end: 20170712
  17. CIFLOX (CIPROFLOXACIN HYDROCHLORIDE) [Concomitant]
     Active Substance: CIPROFLOXACIN HYDROCHLORIDE
     Indication: PNEUMONIA STAPHYLOCOCCAL
     Dosage: UNK
     Dates: start: 20170601, end: 20170602
  18. NEBCINE [Suspect]
     Active Substance: TOBRAMYCIN
     Indication: PNEUMONIA STAPHYLOCOCCAL
     Dosage: 400 MG, QD
     Route: 041
     Dates: start: 20170622, end: 20170624
  19. MYCAMINE [Concomitant]
     Active Substance: MICAFUNGIN SODIUM
     Indication: SYSTEMIC CANDIDA
     Dosage: UNK
     Route: 041
     Dates: start: 20170605, end: 20170612

REACTIONS (3)
  - Lymphopenia [Recovered/Resolved]
  - Leukopenia [Recovered/Resolved]
  - Neutropenia [Recovered/Resolved]

NARRATIVE: CASE EVENT DATE: 20170702
